FAERS Safety Report 15629003 (Version 1)
Quarter: 2018Q4

REPORT INFORMATION
  Report Type: Report from Study
  Country: IT (occurrence: IT)
  Receive Date: 20181116
  Receipt Date: 20181116
  Transmission Date: 20190205
  Serious: Yes (Hospitalization)
  Sender: FDA-Public Use
  Company Number: IT-009507513-1811ITA005483

PATIENT
  Age: 73 Year
  Sex: Female

DRUGS (9)
  1. LORTAAN [Concomitant]
     Active Substance: LOSARTAN POTASSIUM
  2. SINEMET [Concomitant]
     Active Substance: CARBIDOPA\LEVODOPA
  3. SIMVASTATIN. [Suspect]
     Active Substance: SIMVASTATIN
     Dosage: 20 MILLIGRAM, QD
     Route: 048
  4. MIRAPEXIN [Concomitant]
     Active Substance: PRAMIPEXOLE
  5. MINIAS [Concomitant]
     Active Substance: LORMETAZEPAM
     Dosage: 15 GTT DROPS, QD, STRENGTH: 2.5 MG/ML
  6. PANTORC [Concomitant]
     Active Substance: PANTOPRAZOLE SODIUM
     Dosage: 20 MILLIGRAM, QD
     Route: 048
  7. MADOPAR [Concomitant]
     Active Substance: BENSERAZIDE HYDROCHLORIDE\LEVODOPA
     Dosage: 250 MILLIGRAM, QD
     Route: 048
  8. COUMADIN [Suspect]
     Active Substance: WARFARIN SODIUM
     Indication: ATRIAL FIBRILLATION
     Dosage: 1 DOSAGE FORM, AS NECESSARY
     Route: 048
  9. BISOPROLOL FUMARATE. [Concomitant]
     Active Substance: BISOPROLOL FUMARATE
     Dosage: 1250 MICROGRAM
     Route: 048

REACTIONS (2)
  - International normalised ratio increased [Recovered/Resolved]
  - Melaena [Recovered/Resolved]

NARRATIVE: CASE EVENT DATE: 20170607
